FAERS Safety Report 6386662-0 (Version None)
Quarter: 2009Q4

REPORT INFORMATION
  Report Type: 
  Country: None (occurrence: None)
  Receive Date: 20091002
  Receipt Date: 20090918
  Transmission Date: 20100525
  Serious: Yes (Hospitalization)
  Sender: FDA-Public Use
  Company Number: DE-ROCHE-659478

PATIENT
  Sex: Male
  Weight: 72.5 kg

DRUGS (3)
  1. MYCOPHENOLATE MOFETIL [Suspect]
     Route: 065
  2. CYCLOSPORINE [Suspect]
     Route: 065
  3. CYCLOSPORINE [Suspect]
     Route: 065

REACTIONS (1)
  - TRANSPLANT REJECTION [None]
